FAERS Safety Report 15095959 (Version 5)
Quarter: 2018Q3

REPORT INFORMATION
  Report Type: Spontaneous
  Country: DE (occurrence: DE)
  Receive Date: 20180702
  Receipt Date: 20180910
  Transmission Date: 20181010
  Serious: Yes (Life-Threatening, Hospitalization, Other)
  Sender: FDA-Public Use
  Company Number: DE-BRISTOL-MYERS SQUIBB COMPANY-BMS-2018-059443

PATIENT
  Age: 72 Year
  Sex: Male
  Weight: 80 kg

DRUGS (2)
  1. OPDIVO [Suspect]
     Active Substance: NIVOLUMAB
     Indication: NON-SMALL CELL LUNG CANCER
     Dosage: 240 MG, (4 DOSES)
     Route: 042
     Dates: start: 201802, end: 20180518
  2. GRANISETRON                        /01178102/ [Concomitant]
     Active Substance: GRANISETRON
     Indication: ANTIEMETIC SUPPORTIVE CARE
     Dosage: 2 MG, QD
     Route: 065
     Dates: start: 20180518

REACTIONS (9)
  - Transient ischaemic attack [Recovering/Resolving]
  - Adrenal insufficiency [Recovering/Resolving]
  - Autoimmune hepatitis [Recovering/Resolving]
  - Embolism [Unknown]
  - Hypophysitis [Recovering/Resolving]
  - Blood glucose abnormal [Unknown]
  - Cardiac failure [Unknown]
  - Pneumonitis [Recovering/Resolving]
  - Dehydration [Unknown]

NARRATIVE: CASE EVENT DATE: 20180527
